FAERS Safety Report 16263242 (Version 1)
Quarter: 2019Q2

REPORT INFORMATION
  Report Type: Spontaneous
  Country: US (occurrence: US)
  Receive Date: 20190502
  Receipt Date: 20190502
  Transmission Date: 20190711
  Serious: No
  Sender: FDA-Public Use
  Company Number: US-INVENTIA-000008

PATIENT

DRUGS (1)
  1. BUSPIRONE/BUSPIRONE HYDROCHLORIDE [Suspect]
     Active Substance: BUSPIRONE HYDROCHLORIDE
     Indication: PRODUCT USED FOR UNKNOWN INDICATION

REACTIONS (5)
  - Anxiety [Unknown]
  - Insomnia [Unknown]
  - Feeling jittery [Unknown]
  - Nightmare [Unknown]
  - Headache [Unknown]
